FAERS Safety Report 4561752-3 (Version None)
Quarter: 2005Q1

REPORT INFORMATION
  Report Type: 
  Country: None (occurrence: None)
  Receive Date: 20050125
  Receipt Date: 20050112
  Transmission Date: 20050727
  Serious: Yes (Death, Hospitalization)
  Sender: FDA-Public Use
  Company Number: 9720

PATIENT
  Age: 72 Year
  Sex: Male
  Weight: 95 kg

DRUGS (4)
  1. CYTARABINE [Suspect]
     Indication: ACUTE MYELOID LEUKAEMIA
     Dosage: 100 MG/M2 FREQ
     Dates: start: 20041201, end: 20041203
  2. DAUNOMYCIN [Suspect]
     Indication: ACUTE MYELOID LEUKAEMIA
     Dosage: 45 MG/M2 FREQ
     Dates: start: 20041201, end: 20041203
  3. MDR FORMULATION [Suspect]
     Indication: ACUTE MYELOID LEUKAEMIA
     Dosage: 550 MG/M2
     Dates: start: 20041201, end: 20041203
  4. HYDREA [Suspect]
     Dosage: 2 G
     Dates: start: 20041129

REACTIONS (6)
  - CARDIO-RESPIRATORY ARREST [None]
  - COMA [None]
  - DIFFUSE ALVEOLAR DAMAGE [None]
  - HYPOXIA [None]
  - PULMONARY ALVEOLAR HAEMORRHAGE [None]
  - TUMOUR LYSIS SYNDROME [None]
